FAERS Safety Report 8211183-X (Version None)
Quarter: 2012Q1

REPORT INFORMATION
  Report Type: 
  Country: None (occurrence: None)
  Receive Date: 20120315
  Receipt Date: 20120307
  Transmission Date: 20120608
  Serious: Yes (Other)
  Sender: FDA-Public Use
  Company Number: GB-UCBSA-053040

PATIENT
  Sex: Female

DRUGS (4)
  1. CARBAMAZEPINE [Concomitant]
     Dosage: DOSE 600/600/800 MG
  2. LACOSAMIDE [Suspect]
     Indication: EPILEPSY
     Dosage: DOSE 150/200
     Dates: start: 20110901
  3. CLONAZEPAM [Concomitant]
     Dosage: NOCTE
  4. CLOBAZAM [Concomitant]
     Dosage: 10 MG PREMENSTRUALLY AND MID CYCLE

REACTIONS (2)
  - DRUG INEFFECTIVE [None]
  - CONVULSION [None]
